FAERS Safety Report 4390827-7 (Version None)
Quarter: 2004Q3

REPORT INFORMATION
  Report Type: 
  Country: None (occurrence: None)
  Receive Date: 20040706
  Receipt Date: 20040706
  Transmission Date: 20050211
  Serious: Yes (Other)
  Sender: FDA-Public Use
  Company Number: None

PATIENT
  Age: 62 Year
  Sex: Male
  Weight: 68.0396 kg

DRUGS (1)
  1. INSPRA [Suspect]
     Indication: HYPERTENSION
     Dosage: 1 EVERY
     Dates: start: 20040316, end: 20040326

REACTIONS (2)
  - BREAST NEOPLASM [None]
  - ERECTILE DYSFUNCTION [None]
